FAERS Safety Report 7428367-0 (Version None)
Quarter: 2011Q2

REPORT INFORMATION
  Report Type: 
  Country: None (occurrence: None)
  Receive Date: 20110418
  Receipt Date: 20110418
  Transmission Date: 20111010
  Serious: Yes (Death, Life-Threatening, Hospitalization, Disabling, Congenital Anomaly, Other)
  Sender: FDA-Public Use
  Company Number: None

PATIENT
  Age: 19 Year
  Sex: Female
  Weight: 56.6996 kg

DRUGS (1)
  1. SPRINTEC [Suspect]
     Indication: CONTRACEPTION
     Dosage: 1 DAILY PO
     Route: 048
     Dates: start: 20101210, end: 20110416

REACTIONS (9)
  - HYPOPHAGIA [None]
  - SOMNOLENCE [None]
  - NAUSEA [None]
  - PANIC ATTACK [None]
  - PARANOIA [None]
  - ANXIETY [None]
  - FEELING JITTERY [None]
  - DIZZINESS [None]
  - DRUG DOSE OMISSION [None]
